FAERS Safety Report 24149958 (Version 1)
Quarter: 2024Q3

REPORT INFORMATION
  Report Type: Spontaneous
  Country: US (occurrence: US)
  Receive Date: 20240730
  Receipt Date: 20240730
  Transmission Date: 20241017
  Serious: Yes (Hospitalization)
  Sender: NOVO NORDISK
  Company Number: US-NOVOPROD-1260096

PATIENT
  Age: 86 Year
  Sex: Male

DRUGS (1)
  1. NOVOLOG MIX 70/30 [Suspect]
     Active Substance: INSULIN ASPART
     Indication: Type 2 diabetes mellitus
     Dosage: 40 IU, BID
     Route: 058

REACTIONS (7)
  - Dyspnoea [Unknown]
  - Memory impairment [Unknown]
  - Visual impairment [Unknown]
  - Body temperature increased [Unknown]
  - Hyperhidrosis [Unknown]
  - Chest discomfort [Unknown]
  - Heart rate increased [Unknown]

NARRATIVE: CASE EVENT DATE: 20230101
